FAERS Safety Report 9830484 (Version 1)
Quarter: 2014Q1

REPORT INFORMATION
  Report Type: Spontaneous
  Country: JP (occurrence: JP)
  Receive Date: 20140120
  Receipt Date: 20140120
  Transmission Date: 20141002
  Serious: Yes (Other)
  Sender: FDA-Public Use
  Company Number: JP-GLAXOSMITHKLINE-B0959952A

PATIENT
  Age: 73 Year
  Sex: Male

DRUGS (3)
  1. LAMICTAL [Suspect]
     Indication: EPILEPSY
     Dosage: 100MG TWICE PER DAY
     Route: 048
     Dates: start: 20130620
  2. PAXIL [Suspect]
     Indication: DEPRESSION
     Route: 048
     Dates: start: 20131219, end: 20131227
  3. SELENICA-R [Concomitant]
     Indication: EPILEPSY
     Dosage: 400MG PER DAY
     Route: 048
     Dates: start: 20130620

REACTIONS (3)
  - Delirium [Not Recovered/Not Resolved]
  - Bipolar I disorder [Unknown]
  - Psychiatric symptom [Unknown]
